FAERS Safety Report 8096018-0 (Version None)
Quarter: 2012Q1

REPORT INFORMATION
  Report Type: 
  Country: None (occurrence: None)
  Receive Date: 20120129
  Receipt Date: 20111227
  Transmission Date: 20120608
  Serious: No
  Sender: FDA-Public Use
  Company Number: US-ABBOTT-11P-163-0887059-00

PATIENT
  Sex: Male

DRUGS (2)
  1. HUMIRA [Suspect]
     Indication: CROHN'S DISEASE
     Route: 058
     Dates: start: 20111220, end: 20111220
  2. HUMIRA [Suspect]

REACTIONS (3)
  - NIGHT SWEATS [None]
  - DYSPNOEA [None]
  - HEADACHE [None]
